FAERS Safety Report 9668876 (Version 1)
Quarter: 2013Q4

REPORT INFORMATION
  Report Type: Spontaneous
  Country: NO (occurrence: NO)
  Receive Date: 20131105
  Receipt Date: 20131105
  Transmission Date: 20140711
  Serious: No
  Sender: FDA-Public Use
  Company Number: PHHY2013NO124556

PATIENT
  Age: 5 Year
  Sex: 0

DRUGS (1)
  1. LAMISIL [Suspect]
     Indication: OFF LABEL USE
     Dosage: UNK UKN, UNK

REACTIONS (1)
  - Drug administered to patient of inappropriate age [Unknown]
